FAERS Safety Report 5241352-2 (Version None)
Quarter: 2007Q1

REPORT INFORMATION
  Report Type: 
  Country: None (occurrence: None)
  Receive Date: 20070220
  Receipt Date: 20070207
  Transmission Date: 20070707
  Serious: Yes (Hospitalization)
  Sender: FDA-Public Use
  Company Number: US-ELI_LILLY_AND_COMPANY-US200602000231

PATIENT
  Age: 48 Year
  Sex: Female
  Weight: 110 kg

DRUGS (16)
  1. TARKA [Concomitant]
     Dosage: UNK, DAILY (1/D)
     Dates: end: 20000911
  2. DYAZIDE [Concomitant]
     Dosage: UNK, DAILY (1/D)
  3. HYTRIN [Concomitant]
     Dates: start: 19990713, end: 20010724
  4. ZIAC [Concomitant]
     Dosage: 10 MG, DAILY (1/D)
     Dates: start: 19990713
  5. PAXIL [Concomitant]
     Dosage: 20 MG, EACH MORNING
  6. PAXIL [Concomitant]
     Dosage: 40 MG, UNK
  7. VIOXX [Concomitant]
     Dosage: 50 MG, UNK
     Dates: start: 20001009
  8. CHROMAGEN [Concomitant]
     Indication: IRON DEFICIENCY ANAEMIA
  9. PREMARIN [Concomitant]
     Dosage: 0.625 MG, DAILY (1/D)
  10. NORVASC [Concomitant]
     Dosage: 10 MG, DAILY (1/D)
     Dates: start: 20000911
  11. DIOVAN [Concomitant]
     Dosage: UNK, DAILY (1/D)
     Dates: start: 20000911, end: 20050615
  12. AVALIDE [Concomitant]
     Dosage: UNK, DAILY (1/D)
     Dates: start: 20050615
  13. DYNACIRC [Concomitant]
     Dosage: 5 MG, DAILY (1/D)
     Dates: start: 20050721, end: 20050928
  14. DYNACIRC [Concomitant]
     Dosage: 10 MG, UNK
     Dates: start: 20050929
  15. ZYPREXA [Suspect]
     Indication: DEPRESSION
     Dosage: 5 MG, UNK
     Dates: start: 19990701
  16. ZYPREXA [Suspect]
     Dosage: 5 MG, UNK
     Dates: start: 20010904, end: 20011003

REACTIONS (13)
  - BLOOD CHOLESTEROL INCREASED [None]
  - BLOOD CREATINE PHOSPHOKINASE INCREASED [None]
  - BLOOD TRIGLYCERIDES INCREASED [None]
  - CHOLELITHIASIS [None]
  - CORONARY ARTERY DISEASE [None]
  - CORONARY ARTERY OCCLUSION [None]
  - DIABETES MELLITUS NON-INSULIN-DEPENDENT [None]
  - HYPERTENSIVE CRISIS [None]
  - HYPOGLYCAEMIA [None]
  - LOW DENSITY LIPOPROTEIN INCREASED [None]
  - LYMPHOCYTE COUNT INCREASED [None]
  - RENAL FAILURE CHRONIC [None]
  - WEIGHT INCREASED [None]
